FAERS Safety Report 25901947 (Version 2)
Quarter: 2025Q4

REPORT INFORMATION
  Report Type: Spontaneous
  Country: US (occurrence: US)
  Receive Date: 20251009
  Receipt Date: 20251020
  Transmission Date: 20260118
  Serious: No
  Sender: BAYER HEALTHCARE LLC
  Company Number: US-BAYER-2025A133208

PATIENT
  Age: 40 Year
  Sex: Female

DRUGS (2)
  1. ASTEPRO [Suspect]
     Active Substance: AZELASTINE HYDROCHLORIDE
     Dosage: UNK
     Dates: start: 20250919, end: 20250920
  2. ASTEPRO ALLERGY [Suspect]
     Active Substance: AZELASTINE HYDROCHLORIDE
     Dosage: UNK
     Dates: start: 20250919, end: 20250920

REACTIONS (8)
  - Nausea [None]
  - Pain [None]
  - Arthralgia [None]
  - Dysphagia [None]
  - Abdominal pain upper [None]
  - Muscle spasms [None]
  - Mobility decreased [None]
  - Feeding disorder [None]

NARRATIVE: CASE EVENT DATE: 20250920
